FAERS Safety Report 6802802-0 (Version None)
Quarter: 2010Q2

REPORT INFORMATION
  Report Type: 
  Country: None (occurrence: None)
  Receive Date: 20100628
  Receipt Date: 20100615
  Transmission Date: 20101027
  Serious: Yes (Hospitalization)
  Sender: FDA-Public Use
  Company Number: PHHY2010MX39168

PATIENT
  Age: 77 Year
  Sex: Female

DRUGS (6)
  1. ACLASTA [Suspect]
     Dosage: 5 MG/YEAR
     Route: 042
     Dates: start: 20100101
  2. NEXIUM [Concomitant]
  3. PRAVASTATIN [Concomitant]
  4. LARGACTIL [Concomitant]
  5. ATIVAN [Concomitant]
  6. XELODA [Concomitant]

REACTIONS (4)
  - BURNING SENSATION [None]
  - CARCINOID TUMOUR OF THE GASTROINTESTINAL TRACT [None]
  - EXCORIATION [None]
  - SURGERY [None]
